FAERS Safety Report 13153909 (Version 1)
Quarter: 2017Q1

REPORT INFORMATION
  Report Type: Spontaneous
  Country: US (occurrence: US)
  Receive Date: 20170126
  Receipt Date: 20170126
  Transmission Date: 20170428
  Serious: No
  Sender: FDA-Public Use
  Company Number: US-BAYER-2017-015141

PATIENT
  Sex: Female

DRUGS (3)
  1. AZELASTINE [Concomitant]
     Active Substance: AZELASTINE
     Dosage: UNK
  2. CLARISPRAY NASAL ALLERGY [Suspect]
     Active Substance: FLUTICASONE PROPIONATE
     Indication: RHINITIS
     Dosage: UNK
     Dates: start: 2016
  3. CLARITIN [Suspect]
     Active Substance: LORATADINE
     Dosage: 1 DF, BID
     Route: 065

REACTIONS (2)
  - Product use issue [Unknown]
  - Product use issue [Unknown]

NARRATIVE: CASE EVENT DATE: 2016
